FAERS Safety Report 24704019 (Version 2)
Quarter: 2025Q1

REPORT INFORMATION
  Report Type: Spontaneous
  Country: CA (occurrence: CA)
  Receive Date: 20241206
  Receipt Date: 20250103
  Transmission Date: 20250409
  Serious: Yes (Hospitalization, Other)
  Sender: SANDOZ
  Company Number: CA-SANDOZ-SDZ2024CA100534

PATIENT
  Age: 70 Year
  Sex: Female

DRUGS (18)
  1. DEXAMETHASONE [Suspect]
     Active Substance: DEXAMETHASONE
     Indication: Plasma cell myeloma refractory
     Route: 065
  2. ISATUXIMAB [Suspect]
     Active Substance: ISATUXIMAB
     Indication: Plasma cell myeloma refractory
     Route: 065
  3. POMALYST [Suspect]
     Active Substance: POMALIDOMIDE
     Indication: Plasma cell myeloma
     Route: 048
  4. POMALYST [Suspect]
     Active Substance: POMALIDOMIDE
     Indication: Plasma cell myeloma refractory
  5. ACYCLOVIR [Concomitant]
     Active Substance: ACYCLOVIR
     Indication: Deep vein thrombosis
     Dosage: 400 MG, 1 EVERY 0.5 DAYS
     Route: 048
  6. ALLOPURINOL [Concomitant]
     Active Substance: ALLOPURINOL
     Indication: Product used for unknown indication
     Dosage: 300 MG, 1 EVERY 1 DAYS
     Route: 048
  7. APIXABAN [Concomitant]
     Active Substance: APIXABAN
     Indication: Product used for unknown indication
     Dosage: 5 MG, 1 EVERY 0.5 DAYS
     Route: 048
  8. CALCIUM [Concomitant]
     Active Substance: CALCIUM
     Indication: Product used for unknown indication
     Dosage: 500 MG, 1 EVERY 1 DAYS
     Route: 048
  9. CLOBETASOL PROPIONATE [Concomitant]
     Active Substance: CLOBETASOL PROPIONATE
     Indication: Product used for unknown indication
     Route: 065
  10. EPOETIN ALFA [Concomitant]
     Active Substance: ERYTHROPOIETIN
     Indication: Anaemia
     Route: 058
  11. HYDROMORPHONE [Concomitant]
     Active Substance: HYDROMORPHONE
     Indication: Product used for unknown indication
     Route: 048
  12. LEVOFLOXACIN [Concomitant]
     Active Substance: LEVOFLOXACIN
     Indication: Product used for unknown indication
     Dosage: 500 MG, 1 EVERY 1 DAYS
     Route: 048
  13. POLYETHYLENE GLYCOL 3350 [Concomitant]
     Active Substance: POLYETHYLENE GLYCOL 3350
     Indication: Constipation
     Dosage: 17 G, 1 EVERY 1 DAYS, DOSAGE FORM: POWDER FOR SOLUTION ORAL
     Route: 048
  14. SENOKOT [Concomitant]
     Active Substance: SENNOSIDES
     Indication: Product used for unknown indication
     Dosage: 17.2 MG, 1 EVERY 1 DAYS
     Route: 048
  15. VITAMIN D3 [Concomitant]
     Active Substance: CHOLECALCIFEROL
     Indication: Product used for unknown indication
     Dosage: 1 EVERY 1 DAYS
     Route: 048
  16. GOSERELIN [Concomitant]
     Active Substance: GOSERELIN
     Indication: Product used for unknown indication
     Route: 065
  17. GOSERELIN [Concomitant]
     Active Substance: GOSERELIN
     Indication: Product used for unknown indication
     Route: 065
  18. ZOLEDRONIC ACID [Concomitant]
     Active Substance: ZOLEDRONIC ACID
     Indication: Bone disorder
     Dosage: 4 MG, 1 EVERY 4 WEEKS
     Route: 042

REACTIONS (9)
  - Cytokine release syndrome [Unknown]
  - Febrile neutropenia [Unknown]
  - Haemolysis [Unknown]
  - Hepatic enzyme increased [Unknown]
  - Lymphadenopathy [Unknown]
  - Pancytopenia [Unknown]
  - Pulmonary mass [Unknown]
  - Thyroid mass [Unknown]
  - Plasma cell myeloma [Unknown]
